FAERS Safety Report 5638485-5 (Version None)
Quarter: 2008Q1

REPORT INFORMATION
  Report Type: 
  Country: None (occurrence: None)
  Receive Date: 20080226
  Receipt Date: 20070117
  Transmission Date: 20080703
  Serious: No
  Sender: FDA-Public Use
  Company Number: A0636001A

PATIENT
  Sex: Female

DRUGS (6)
  1. IMITREX [Suspect]
     Indication: MIGRAINE
     Route: 058
     Dates: end: 20040101
  2. IMITREX [Suspect]
     Route: 045
  3. LAMICTAL [Suspect]
     Dosage: 12.5MG PER DAY
     Route: 048
     Dates: start: 20061101, end: 20061214
  4. ZONEGRAN [Concomitant]
  5. PHENOBARBITAL TAB [Concomitant]
  6. DIAZEPAM [Concomitant]

REACTIONS (7)
  - AGITATION [None]
  - BURNING SENSATION [None]
  - CHEST PAIN [None]
  - PAIN [None]
  - PAIN IN JAW [None]
  - PARAESTHESIA ORAL [None]
  - PRURITUS [None]
